FAERS Safety Report 19232344 (Version 2)
Quarter: 2021Q2

REPORT INFORMATION
  Report Type: Spontaneous
  Country: AR (occurrence: AR)
  Receive Date: 20210507
  Receipt Date: 20210520
  Transmission Date: 20210717
  Serious: Yes (Other)
  Sender: FDA-Public Use
  Company Number: AR-AMGEN-ARGSP2021070106

PATIENT
  Sex: Female

DRUGS (1)
  1. ENBREL [Suspect]
     Active Substance: ETANERCEPT
     Indication: PRODUCT USED FOR UNKNOWN INDICATION
     Dosage: UNK
     Route: 065

REACTIONS (9)
  - Intervertebral disc protrusion [Unknown]
  - Eye pain [Unknown]
  - Wrist fracture [Unknown]
  - Cyst [Unknown]
  - Bone disorder [Unknown]
  - Feeling abnormal [Unknown]
  - Fall [Unknown]
  - Pain [Unknown]
  - Spinal pain [Unknown]

NARRATIVE: CASE EVENT DATE: 2020
